FAERS Safety Report 9335374 (Version 1)
Quarter: 2013Q2

REPORT INFORMATION
  Report Type: Report from Study
  Country: US (occurrence: US)
  Receive Date: 20130605
  Receipt Date: 20130605
  Transmission Date: 20140414
  Serious: Yes (Hospitalization, Other)
  Sender: FDA-Public Use
  Company Number: US-009507513-1005USA01256

PATIENT
  Age: 62 Year
  Sex: Male
  Weight: 99.79 kg

DRUGS (8)
  1. EZETIMIBE (+) SIMVASTATIN [Suspect]
     Indication: ACUTE CORONARY SYNDROME
     Dosage: 10/40 MG  QD
     Route: 048
     Dates: start: 20080915
  2. METFORMIN [Concomitant]
     Dosage: 1000 MG, DAILY
     Route: 048
     Dates: start: 20090804
  3. NITROSTAT [Concomitant]
     Dosage: 0.4 MG, DAILY
     Route: 060
     Dates: start: 20080914
  4. PLAVIX [Concomitant]
     Dosage: 75 MG, QD
     Route: 048
     Dates: start: 20080913, end: 20101019
  5. TERAZOSIN HYDROCHLORIDE [Concomitant]
     Dosage: 2 MG, QD
     Route: 048
     Dates: start: 20091103
  6. ASPIRIN [Concomitant]
     Dosage: 81 MG, DAILY
     Route: 048
     Dates: start: 20080911
  7. ZANTAC [Concomitant]
     Dosage: 150 MG, QD
     Route: 048
     Dates: start: 20080808
  8. RANITIDINE [Concomitant]
     Dosage: 150 MG, PRN
     Route: 048
     Dates: start: 20080808

REACTIONS (6)
  - Bladder transitional cell carcinoma [Unknown]
  - Transitional cell carcinoma [Unknown]
  - Haematuria [Recovered/Resolved]
  - Transitional cell carcinoma [Unknown]
  - Transitional cell carcinoma [Unknown]
  - Urinary retention [Recovered/Resolved]
